FAERS Safety Report 23383365 (Version 5)
Quarter: 2025Q1

REPORT INFORMATION
  Report Type: Spontaneous
  Country: US (occurrence: US)
  Receive Date: 20240109
  Receipt Date: 20250108
  Transmission Date: 20250409
  Serious: No
  Sender: SANOFI AVENTIS
  Company Number: US-SA-SAC20240103000123

PATIENT
  Age: 51 Year
  Sex: Female
  Weight: 51.25 kg

DRUGS (20)
  1. DUPIXENT [Suspect]
     Active Substance: DUPILUMAB
     Indication: Dermatitis atopic
     Dosage: 300 MG, QOW
     Route: 058
     Dates: end: 202412
  2. PANTOPRAZOLE [Concomitant]
     Active Substance: PANTOPRAZOLE
  3. IBSRELA [Concomitant]
     Active Substance: TENAPANOR HYDROCHLORIDE
  4. NYSTATIN [Concomitant]
     Active Substance: NYSTATIN
  5. CLONAZEPAM [Concomitant]
     Active Substance: CLONAZEPAM
  6. DESVENLAFAXINE SUCCINATE [Concomitant]
     Active Substance: DESVENLAFAXINE SUCCINATE
  7. METOPROLOL [Concomitant]
     Active Substance: METOPROLOL
  8. HYDROXYCHLOROQUINE [Concomitant]
     Active Substance: HYDROXYCHLOROQUINE
  9. PREDNISONE [Concomitant]
     Active Substance: PREDNISONE
  10. CLOBETASOL [Concomitant]
     Active Substance: CLOBETASOL
  11. TRIAMCINOLONE [Concomitant]
     Active Substance: TRIAMCINOLONE
  12. MIRTAZAPINE [Concomitant]
     Active Substance: MIRTAZAPINE
  13. METOPROLOL SUCCINATE [Concomitant]
     Active Substance: METOPROLOL SUCCINATE
  14. ESTRADIOL [Concomitant]
     Active Substance: ESTRADIOL
  15. KLOR-CON [Concomitant]
     Active Substance: POTASSIUM CHLORIDE
  16. HYDROXYZINE [Concomitant]
     Active Substance: HYDROXYZINE HYDROCHLORIDE
  17. DESVENLAFAXINE [Concomitant]
     Active Substance: DESVENLAFAXINE
  18. PREDNISONE [Concomitant]
     Active Substance: PREDNISONE
  19. EBGLYSS [Concomitant]
     Active Substance: LEBRIKIZUMAB-LBKZ
     Dates: start: 2024
  20. LEBRIKIZUMAB [Concomitant]
     Active Substance: LEBRIKIZUMAB

REACTIONS (8)
  - Contusion [Unknown]
  - Injection site nodule [Recovered/Resolved]
  - Pain [Unknown]
  - Pruritus [Unknown]
  - Injection site pain [Recovered/Resolved]
  - Dermatitis atopic [Unknown]
  - Rash [Unknown]
  - Drug ineffective [Unknown]
